FAERS Safety Report 25458649 (Version 1)
Quarter: 2025Q2

REPORT INFORMATION
  Report Type: Report from Study
  Country: GB (occurrence: GB)
  Receive Date: 20250620
  Receipt Date: 20250620
  Transmission Date: 20250716
  Serious: Yes (Other)
  Sender: CELLTRION
  Company Number: GB-CELLTRION INC.-2025GB018976

PATIENT

DRUGS (1)
  1. ADALIMUMAB-AATY [Suspect]
     Active Substance: ADALIMUMAB-AATY
     Indication: Psoriatic arthropathy
     Dosage: YUFLYMA 40MG FOR INJECTION PENS - INJECT ONE PRE-FILLED PEN EVERY TWO WEEK
     Route: 058
     Dates: start: 202503, end: 202506

REACTIONS (6)
  - Psoriatic arthropathy [Unknown]
  - Eye pain [Unknown]
  - Rash vesicular [Unknown]
  - Fatigue [Unknown]
  - Impaired healing [Unknown]
  - Nausea [Unknown]
